FAERS Safety Report 4957272-4 (Version None)
Quarter: 2006Q1

REPORT INFORMATION
  Report Type: 
  Country: None (occurrence: None)
  Receive Date: 20060329
  Receipt Date: 20051005
  Transmission Date: 20060701
  Serious: Yes (Hospitalization, Congenital Anomaly)
  Sender: FDA-Public Use
  Company Number: US-MERCK-0510USA03851

PATIENT
  Age: 66 Year
  Sex: Female
  Weight: 82 kg

DRUGS (7)
  1. VIOXX [Suspect]
     Indication: ARTHRALGIA
     Route: 048
     Dates: start: 19990101, end: 20020504
  2. VIOXX [Suspect]
     Indication: RHEUMATOID ARTHRITIS
     Route: 048
     Dates: start: 19990101, end: 20020504
  3. ASPIRIN [Concomitant]
     Route: 065
     Dates: start: 19900101
  4. DETROL [Concomitant]
     Route: 065
  5. EVISTA [Concomitant]
     Route: 065
  6. PRINIVIL [Concomitant]
     Route: 065
  7. BETAPACE [Concomitant]
     Route: 065
     Dates: start: 19990101, end: 20020501

REACTIONS (8)
  - ABDOMINAL STRANGULATED HERNIA [None]
  - BLOOD CHOLESTEROL INCREASED [None]
  - CARDIAC FAILURE CONGESTIVE [None]
  - HEART DISEASE CONGENITAL [None]
  - HEART RATE IRREGULAR [None]
  - HYPERTENSION [None]
  - MYOCARDIAL INFARCTION [None]
  - UMBILICAL HERNIA [None]
